FAERS Safety Report 13183688 (Version 1)
Quarter: 2017Q1

REPORT INFORMATION
  Report Type: Spontaneous
  Country: US (occurrence: US)
  Receive Date: 20170202
  Receipt Date: 20170202
  Transmission Date: 20170428
  Serious: Yes (Disabling, Other)
  Sender: FDA-Public Use
  Company Number: None

PATIENT
  Age: 35 Year
  Sex: Female
  Weight: 67.5 kg

DRUGS (4)
  1. FLORASTOR [Concomitant]
     Active Substance: SACCHAROMYCES CEREVISIAE
  2. VANCOMYCIN [Concomitant]
     Active Substance: VANCOMYCIN
  3. PROBIOTIC [Concomitant]
     Active Substance: PROBIOTICS NOS
  4. CEFDINIR. [Suspect]
     Active Substance: CEFDINIR
     Indication: SINUSITIS
     Route: 048
     Dates: start: 20170109, end: 20170114

REACTIONS (2)
  - Diarrhoea haemorrhagic [None]
  - Clostridium test positive [None]

NARRATIVE: CASE EVENT DATE: 20170115
